FAERS Safety Report 15088370 (Version 1)
Quarter: 2018Q2

REPORT INFORMATION
  Report Type: Spontaneous
  Country: GB (occurrence: GB)
  Receive Date: 20180629
  Receipt Date: 20180629
  Transmission Date: 20180711
  Serious: Yes (Disabling)
  Sender: FDA-Public Use
  Company Number: GB-TEVA-2018-GB-914227

PATIENT
  Age: 82 Year
  Sex: Male
  Weight: 86 kg

DRUGS (11)
  1. ADCAL [Concomitant]
     Active Substance: CALCIUM CARBONATE
     Dosage: 2 DOSAGE FORMS DAILY;
     Dates: start: 20170629, end: 20180425
  2. SIMVASTATIN. [Concomitant]
     Active Substance: SIMVASTATIN
     Dosage: 1 DOSAGE FORMS DAILY; AT NIGHT
     Dates: start: 20170203, end: 20180425
  3. DESUNIN [Concomitant]
     Active Substance: CHOLECALCIFEROL
     Dosage: 4 DOSAGE FORMS DAILY; FOR TWELVE WEEKS
     Dates: start: 20180222, end: 20180324
  4. BISOPROLOL [Concomitant]
     Active Substance: BISOPROLOL
     Dosage: 2 DOSAGE FORMS DAILY;
     Dates: start: 20170203, end: 20180425
  5. TAMSULOSIN HYDROCHLORIDE. [Suspect]
     Active Substance: TAMSULOSIN HYDROCHLORIDE
     Route: 065
     Dates: start: 20180205
  6. FERROUS FUMARATE [Concomitant]
     Active Substance: FERROUS FUMARATE
     Dosage: 1 DOSAGE FORMS DAILY;
     Dates: start: 20170301, end: 20180425
  7. SERTRALINE [Concomitant]
     Active Substance: SERTRALINE HYDROCHLORIDE
     Dosage: 1 DOSAGE FORMS DAILY;
     Dates: start: 20170203, end: 20180425
  8. ZOPICLONE [Concomitant]
     Active Substance: ZOPICLONE
     Dosage: 1 DOSAGE FORMS DAILY; AT NIGHT
     Dates: start: 20170203, end: 20180425
  9. COCODAMOL [Concomitant]
     Active Substance: ACETAMINOPHEN\CODEINE PHOSPHATE
     Dosage: 1-2 UP TO
     Dates: start: 20180405, end: 20180418
  10. ACETYLSALICYLIC ACID [Concomitant]
     Active Substance: ASPIRIN
     Dosage: 1 DOSAGE FORMS DAILY;
     Dates: start: 20170203, end: 20180425
  11. HYOSCINE BUTYLBROMIDE [Concomitant]
     Active Substance: BUTYLSCOPOLAMINE
     Dosage: 8 DOSAGE FORMS DAILY;
     Dates: start: 20170203, end: 20180425

REACTIONS (1)
  - Abdominal discomfort [Recovered/Resolved]

NARRATIVE: CASE EVENT DATE: 20180515
